FAERS Safety Report 9130227 (Version 1)
Quarter: 2013Q1

REPORT INFORMATION
  Report Type: Spontaneous
  Country: CH (occurrence: CH)
  Receive Date: 20130228
  Receipt Date: 20130228
  Transmission Date: 20140127
  Serious: Yes (Hospitalization)
  Sender: FDA-Public Use
  Company Number: PHHY2012CH127919

PATIENT
  Age: 58 Year
  Sex: Female
  Weight: 75 kg

DRUGS (9)
  1. LEPONEX [Suspect]
     Indication: SCHIZOPHRENIA, PARANOID TYPE
     Dosage: 300 MG, QD
     Route: 048
     Dates: start: 2009, end: 20121126
  2. LEPONEX [Suspect]
     Dosage: 50 MG, QD
  3. LEPONEX [Suspect]
     Dosage: 100 MG, QD
     Route: 048
  4. LEPONEX [Suspect]
     Dosage: 100 MG, QD
     Route: 048
     Dates: start: 20121201
  5. TRITTICO [Concomitant]
     Dosage: 100 MG, QD
     Route: 048
  6. METOPROLOL [Concomitant]
     Indication: HYPERTENSION
     Dosage: 100 MG, QD
     Route: 048
  7. FOLICUM [Concomitant]
     Dosage: 5 MG, QD
     Route: 048
  8. RIVOTRIL [Concomitant]
     Route: 048
  9. MOVICOL [Concomitant]
     Dosage: UNK

REACTIONS (5)
  - Catatonia [Recovering/Resolving]
  - Mutism [Recovering/Resolving]
  - Tardive dyskinesia [Recovering/Resolving]
  - Withdrawal syndrome [Recovering/Resolving]
  - Muscular weakness [Recovering/Resolving]
